FAERS Safety Report 11913214 (Version 2)
Quarter: 2016Q1

REPORT INFORMATION
  Report Type: Spontaneous
  Country: EE (occurrence: EE)
  Receive Date: 20160113
  Receipt Date: 20160122
  Transmission Date: 20160526
  Serious: Yes (Hospitalization)
  Sender: FDA-Public Use
  Company Number: EE-ABBVIE-16P-221-1534320-00

PATIENT
  Age: 29 Year
  Sex: Male
  Weight: 115 kg

DRUGS (5)
  1. EXVIERA [Suspect]
     Active Substance: DASABUVIR
     Indication: HEPATITIS C
     Dosage: IN THE MORNING AND IN THE EVENING
     Route: 048
     Dates: start: 20150507, end: 20150807
  2. NEBILET [Concomitant]
     Active Substance: NEBIVOLOL
     Indication: HYPERTONIA
     Dosage: 5MG DAILY
     Route: 048
  3. VIEKIRAX [Suspect]
     Active Substance: OMBITASVIR\PARITAPREVIR\RITONAVIR
     Indication: HEPATITIS C
     Dosage: UNIT DOSE: 150MG + 100 MG + 25 MG; IN THE MORNING
     Route: 048
     Dates: start: 20150507, end: 20150807
  4. MODERIBA [Suspect]
     Active Substance: RIBAVIRIN
     Route: 048
     Dates: end: 20150807
  5. MODERIBA [Suspect]
     Active Substance: RIBAVIRIN
     Indication: HEPATITIS C
     Route: 048
     Dates: start: 20150507

REACTIONS (1)
  - Anaemia [Recovered/Resolved]

NARRATIVE: CASE EVENT DATE: 201505
